FAERS Safety Report 21350198 (Version 1)
Quarter: 2022Q3

REPORT INFORMATION
  Report Type: Report from Study
  Country: DE (occurrence: DE)
  Receive Date: 20220919
  Receipt Date: 20220919
  Transmission Date: 20221027
  Serious: Yes (Hospitalization, Other)
  Sender: FDA-Public Use
  Company Number: DE-MYLANLABS-2022M1091210

PATIENT
  Sex: Male

DRUGS (3)
  1. UNSPECIFIED INGREDIENT [Suspect]
     Active Substance: UNSPECIFIED INGREDIENT
     Dosage: NO DOSE GIVEN
  2. METHOTREXATE SODIUM [Suspect]
     Active Substance: METHOTREXATE SODIUM
     Indication: Axial spondyloarthritis
     Dosage: 15 MG
     Route: 048
     Dates: start: 20200106
  3. MELOXICAM [Suspect]
     Active Substance: MELOXICAM
     Indication: Axial spondyloarthritis
     Dosage: 15 MG
     Dates: start: 20190408, end: 20210315

REACTIONS (1)
  - Acute myocardial infarction [Unknown]

NARRATIVE: CASE EVENT DATE: 20210309
